FAERS Safety Report 18780192 (Version 1)
Quarter: 2021Q1

REPORT INFORMATION
  Report Type: Spontaneous
  Country: US (occurrence: US)
  Receive Date: 20210125
  Receipt Date: 20210125
  Transmission Date: 20210419
  Serious: No
  Sender: FDA-Public Use
  Company Number: US-ALLERGAN-2042218US

PATIENT
  Sex: Male

DRUGS (1)
  1. MONUROL [Suspect]
     Active Substance: FOSFOMYCIN TROMETHAMINE
     Indication: PROPHYLAXIS
     Dosage: UNK UNK, SINGLE

REACTIONS (2)
  - Off label use [Unknown]
  - Product preparation error [Unknown]
